FAERS Safety Report 21920629 (Version 1)
Quarter: 2023Q1

REPORT INFORMATION
  Report Type: Report from Study
  Country: US (occurrence: US)
  Receive Date: 20230127
  Receipt Date: 20230127
  Transmission Date: 20230418
  Serious: No
  Sender: FDA-Public Use
  Company Number: US-BIOVITRUM-2022US15266

PATIENT
  Age: 67 Year
  Sex: Female

DRUGS (1)
  1. KINERET [Suspect]
     Active Substance: ANAKINRA
     Indication: Sjogren^s syndrome
     Dates: start: 20221217

REACTIONS (5)
  - Contusion [Unknown]
  - Drug hypersensitivity [Unknown]
  - Urticaria [Unknown]
  - Injection site pain [Unknown]
  - Off label use [Unknown]

NARRATIVE: CASE EVENT DATE: 20221201
